FAERS Safety Report 16731381 (Version 1)
Quarter: 2019Q3

REPORT INFORMATION
  Report Type: Spontaneous
  Country: US (occurrence: US)
  Receive Date: 20190822
  Receipt Date: 20190822
  Transmission Date: 20191005
  Serious: Yes (Other)
  Sender: FDA-Public Use
  Company Number: US-BAUSCH-BL-2019-023230

PATIENT
  Sex: Female
  Weight: 74.91 kg

DRUGS (5)
  1. ATIVAN [Suspect]
     Active Substance: LORAZEPAM
     Indication: PANIC ATTACK
     Dosage: A LITTLE LESS THAN TWELVE YEARS AGO,  2 MG BY MOUTH IN DIVIDED DOSES PER DAY
     Route: 048
  2. DEMEROL [Concomitant]
     Active Substance: MEPERIDINE HYDROCHLORIDE
     Indication: PRODUCT USED FOR UNKNOWN INDICATION
  3. ATIVAN [Suspect]
     Active Substance: LORAZEPAM
     Indication: PRODUCT USE IN UNAPPROVED INDICATION
     Dosage: INCREASED TO 3 MG BY MOUTH IN DIVIDED DOSES PER DAY
     Route: 048
  4. ATIVAN [Suspect]
     Active Substance: LORAZEPAM
     Dosage: DOSE WAS INCREASED TO 1 MG BY MOUTH THREE TIMES DAILY AND 2 MG BY MOUTH EVERY NIGHT AT BEDTIME.
     Route: 048
  5. AMBIEN CR [Concomitant]
     Active Substance: ZOLPIDEM TARTRATE
     Indication: PRODUCT USED FOR UNKNOWN INDICATION
     Route: 048

REACTIONS (7)
  - Visual impairment [Not Recovered/Not Resolved]
  - Cataract [Unknown]
  - Impaired healing [Not Recovered/Not Resolved]
  - Coeliac disease [Recovering/Resolving]
  - Condition aggravated [Recovering/Resolving]
  - Drug effective for unapproved indication [Unknown]
  - Product use in unapproved indication [Unknown]
